FAERS Safety Report 9813445 (Version 1)
Quarter: 2014Q1

REPORT INFORMATION
  Report Type: Report from Study
  Country: BR (occurrence: BR)
  Receive Date: 20140113
  Receipt Date: 20140113
  Transmission Date: 20141002
  Serious: Yes (Hospitalization, Other)
  Sender: FDA-Public Use
  Company Number: PHHY2014BR001595

PATIENT
  Age: 71 Year
  Sex: Female
  Weight: 66 kg

DRUGS (10)
  1. DIOVAN [Suspect]
     Dosage: UNK UKN, UNK
  2. VALSARTAN [Suspect]
     Indication: HYPERTENSION
     Dosage: 1 DF (160 MG), QD (IN THE MORNING)
     Route: 048
     Dates: start: 2009
  3. ATENOLOL [Concomitant]
     Indication: HYPERTENSION
     Dosage: UNK UKN, UNK
     Dates: start: 2012
  4. AAS [Concomitant]
     Indication: BLOOD DISORDER
     Dosage: UNK UKN, UNK
     Dates: start: 201309
  5. ROSUVASTATIN [Concomitant]
     Indication: BLOOD CHOLESTEROL
     Dosage: UNK UKN, UNK
     Dates: start: 2012, end: 2013
  6. SIMVASTATIN [Concomitant]
     Indication: BLOOD CHOLESTEROL
     Dosage: UNK UKN, UNK
     Dates: start: 2013
  7. CLOPIDOGREL [Concomitant]
     Dosage: UNK UKN, UNK
     Dates: start: 2012
  8. PURAN T4 [Concomitant]
     Indication: THYROID DISORDER
     Dosage: UNK UKN, UNK
     Dates: start: 2004
  9. SUSTRATE [Concomitant]
     Dosage: UNK UKN, UNK
     Dates: start: 201309
  10. RANITIDINE [Concomitant]
     Indication: GASTRIC DISORDER
     Dosage: UNK UKN, UNK

REACTIONS (7)
  - Cerebrovascular accident [Unknown]
  - Blood pressure increased [Unknown]
  - Thyroid cyst [Unknown]
  - Venous occlusion [Unknown]
  - Varicose vein [Unknown]
  - Malaise [Unknown]
  - Blood pressure fluctuation [Unknown]
